FAERS Safety Report 7878629-8 (Version None)
Quarter: 2011Q4

REPORT INFORMATION
  Report Type: 
  Country: None (occurrence: None)
  Receive Date: 20111028
  Receipt Date: 20111024
  Transmission Date: 20120403
  Serious: No
  Sender: FDA-Public Use
  Company Number: 1000024710

PATIENT
  Age: 54 Year
  Sex: Male
  Weight: 107 kg

DRUGS (3)
  1. DIAZEPAM [Concomitant]
  2. SAVELLA [Suspect]
     Indication: BIPOLAR I DISORDER
     Dosage: 12.5 MG (12.5 MG, 1 IN 1 D), ORAL
     Route: 048
     Dates: start: 20100322, end: 20100322
  3. LISINOPRIL [Concomitant]

REACTIONS (4)
  - FEELING DRUNK [None]
  - BALANCE DISORDER [None]
  - OFF LABEL USE [None]
  - SOMNOLENCE [None]
